FAERS Safety Report 8430802-6 (Version None)
Quarter: 2012Q2

REPORT INFORMATION
  Report Type: 
  Country: None (occurrence: None)
  Receive Date: 20120323
  Receipt Date: 20110421
  Transmission Date: 20120825
  Serious: Yes (Hospitalization)
  Sender: FDA-Public Use
  Company Number: 163-21880-11042918

PATIENT
  Age: 58 Year
  Sex: Male
  Weight: 124.7392 kg

DRUGS (11)
  1. NEURONTIN [Concomitant]
  2. ZOFRAN [Concomitant]
  3. FLOMAX (TAMSULOSIN HYDROCHLORIDE) (UNKNOWN) [Concomitant]
  4. TEMAZEPAM [Concomitant]
  5. REVLIMID [Suspect]
     Indication: MULTIPLE MYELOMA
     Dosage: 15 MG, 1 QD D1-D2, PO
     Route: 048
     Dates: start: 20110101, end: 20110228
  6. OXYCONTIN [Concomitant]
  7. CALCIUM (CALCIUM) (UNKNOWN) [Concomitant]
  8. DEXAMETHASONE [Concomitant]
  9. VELCADE (BORTEZOMID) (UNKNOWN) [Concomitant]
  10. OMEPRAZOLE [Concomitant]
  11. LORAZEPAM [Concomitant]

REACTIONS (4)
  - DYSPNOEA [None]
  - RESPIRATORY TRACT CONGESTION [None]
  - PNEUMONITIS [None]
  - COUGH [None]
